FAERS Safety Report 8544690-0 (Version None)
Quarter: 2012Q3

REPORT INFORMATION
  Report Type: 
  Country: None (occurrence: None)
  Receive Date: 20120727
  Receipt Date: 20120716
  Transmission Date: 20120928
  Serious: Yes (Other)
  Sender: FDA-Public Use
  Company Number: NO-BRISTOL-MYERS SQUIBB COMPANY-16774366

PATIENT
  Age: 24 Year
  Sex: Male

DRUGS (8)
  1. CYCLOPHOSPHAMIDE [Suspect]
     Indication: HODGKIN'S DISEASE
     Dosage: OR 650MG/M2
     Route: 042
  2. PROCARBAZINE HYDROCHLORIDE [Suspect]
     Indication: HODGKIN'S DISEASE
     Route: 048
  3. SULFAMETHOXAZOLE AND TRIMETHOPRIM [Concomitant]
     Indication: ANTIFUNGAL PROPHYLAXIS
     Route: 065
  4. ETOPOSIDE [Suspect]
     Indication: HODGKIN'S DISEASE
     Dosage: 100 (STANDARD) ON DAYS 1-3
     Route: 042
  5. BLEOMYCIN SULFATE [Suspect]
     Indication: HODGKIN'S DISEASE
     Dosage: DAY 8
     Route: 042
  6. ADRIAMYCIN PFS [Suspect]
     Indication: HODGKIN'S DISEASE
     Dosage: 25MG/M2 OR 35MG/M2
     Route: 042
  7. PREDNISONE TAB [Suspect]
     Indication: HODGKIN'S DISEASE
     Dosage: DOSAGE:D1-D14
     Route: 048
  8. VINCRISTINE [Suspect]
     Indication: HODGKIN'S DISEASE
     Route: 042

REACTIONS (1)
  - OSTEONECROSIS [None]
